FAERS Safety Report 4314194-X (Version None)
Quarter: 2004Q1

REPORT INFORMATION
  Report Type: 
  Country: None (occurrence: None)
  Receive Date: 20040309
  Receipt Date: 20031225
  Transmission Date: 20041129
  Serious: Yes (Hospitalization)
  Sender: FDA-Public Use
  Company Number: 200311596JP

PATIENT
  Age: 59 Year
  Sex: Female
  Weight: 47.6 kg

DRUGS (21)
  1. ARAVA [Suspect]
     Indication: RHEUMATOID ARTHRITIS
     Route: 048
     Dates: start: 20031110, end: 20031215
  2. PREDONINE [Concomitant]
     Route: 048
  3. PREDNISOLONE [Concomitant]
     Route: 048
  4. VOLTAREN - SLOW RELEASE ^CIBA-GEIGY^ [Concomitant]
     Route: 048
     Dates: start: 20031208, end: 20031207
  5. CYTOTEC [Concomitant]
     Route: 048
  6. TAGAMET [Concomitant]
     Route: 048
     Dates: start: 20031208, end: 20031207
  7. RHEUMATREX [Concomitant]
     Dosage: DOSE: 8MG/WEEK
     Route: 048
     Dates: end: 20031109
  8. CONIEL [Concomitant]
     Route: 048
  9. FOLIAMIN [Concomitant]
     Dosage: DOSE: 10MG/WEEK
     Route: 048
     Dates: end: 20031109
  10. SOLANAX [Concomitant]
     Route: 048
     Dates: start: 20031227, end: 20031120
  11. LIPOVAS ^BANYU^ [Concomitant]
     Route: 048
  12. BASEN [Concomitant]
     Route: 048
  13. MYSLEE [Concomitant]
     Route: 048
     Dates: start: 20031121, end: 20031109
  14. SILECE [Concomitant]
     Route: 048
     Dates: start: 20031121, end: 20031109
  15. REMICADE [Concomitant]
     Route: 041
     Dates: start: 20031020, end: 20031020
  16. SAXIZON [Concomitant]
     Route: 041
     Dates: start: 20031020, end: 20031020
  17. PYRINAZIN [Concomitant]
     Route: 048
     Dates: start: 20031020
  18. ISODINE [Concomitant]
     Route: 049
     Dates: start: 20031015
  19. MOHRUS [Concomitant]
     Route: 062
     Dates: start: 20031015, end: 20031109
  20. ALLEGRA [Concomitant]
     Route: 048
     Dates: start: 20031019, end: 20031020
  21. PAXIL [Concomitant]
     Route: 048
     Dates: start: 20031208

REACTIONS (18)
  - AFFECTIVE DISORDER [None]
  - ALANINE AMINOTRANSFERASE INCREASED [None]
  - ASPARTATE AMINOTRANSFERASE INCREASED [None]
  - BASOPHIL PERCENTAGE [None]
  - BLOOD ALKALINE PHOSPHATASE ABNORMAL [None]
  - CHEST PAIN [None]
  - DECREASED APPETITE [None]
  - EOSINOPHIL PERCENTAGE ABNORMAL [None]
  - ERYTHEMA [None]
  - GAMMA-GLUTAMYLTRANSFERASE INCREASED [None]
  - HAEMOGLOBIN ABNORMAL [None]
  - HYPERTENSION [None]
  - LYMPHOCYTE PERCENTAGE [None]
  - MONOCYTE PERCENTAGE DECREASED [None]
  - NASOPHARYNGITIS [None]
  - NAUSEA [None]
  - RED BLOOD CELL COUNT ABNORMAL [None]
  - WHITE BLOOD CELL COUNT DECREASED [None]
